FAERS Safety Report 12455790 (Version 1)
Quarter: 2016Q2

REPORT INFORMATION
  Report Type: Spontaneous
  Country: JP (occurrence: JP)
  Receive Date: 20160610
  Receipt Date: 20160610
  Transmission Date: 20160815
  Serious: Yes (Hospitalization, Other)
  Sender: FDA-Public Use
  Company Number: JP-NOVOPROD-494604

PATIENT
  Age: 42 Year
  Sex: Male

DRUGS (2)
  1. NOVORAPID [Suspect]
     Active Substance: INSULIN ASPART
     Indication: SUICIDAL IDEATION
     Dosage: 300 IU
     Route: 065
  2. NOVOLIN [Suspect]
     Active Substance: INSULIN HUMAN
     Indication: SUICIDAL IDEATION
     Dosage: 300 IU
     Route: 065

REACTIONS (4)
  - Suicide attempt [Unknown]
  - Prescription drug used without a prescription [None]
  - Intentional product misuse [Unknown]
  - Hypoglycaemic unconsciousness [Recovering/Resolving]
